FAERS Safety Report 15644933 (Version 3)
Quarter: 2018Q4

REPORT INFORMATION
  Report Type: Spontaneous
  Country: JP (occurrence: JP)
  Receive Date: 20181121
  Receipt Date: 20181213
  Transmission Date: 20190205
  Serious: Yes (Hospitalization)
  Sender: FDA-Public Use
  Company Number: JP-ABBVIE-18K-087-2509814-00

PATIENT
  Age: 39 Year
  Sex: Female
  Weight: 52.32 kg

DRUGS (10)
  1. VONOPRAZAN FUMARATE [Concomitant]
     Active Substance: VONOPRAZAN FUMURATE
     Indication: CHRONIC GASTRITIS
     Route: 048
  2. ESZOPICLONE. [Concomitant]
     Active Substance: ESZOPICLONE
     Indication: INSOMNIA
     Route: 048
     Dates: start: 20180723, end: 20180723
  3. PREGABALIN. [Concomitant]
     Active Substance: PREGABALIN
     Indication: FIBROMYALGIA
     Route: 048
  4. SULPIRIDE [Concomitant]
     Active Substance: SULPIRIDE
     Indication: CHRONIC GASTRITIS
     Route: 048
  5. ACOTIAMIDE HYDROCHLORIDE TRIHYDRATE [Concomitant]
     Indication: CHRONIC GASTRITIS
     Route: 048
  6. SALAZOSULFAPYRIDINE [Concomitant]
     Active Substance: SULFASALAZINE
     Indication: SPONDYLITIS
  7. ACETAMINOPHEN. [Concomitant]
     Active Substance: ACETAMINOPHEN
     Indication: FIBROMYALGIA
     Route: 048
  8. AZULFIDINE [Suspect]
     Active Substance: SULFASALAZINE
     Indication: SPONDYLITIS
     Route: 048
     Dates: start: 20180530, end: 20180721
  9. ASPIRIN. [Concomitant]
     Active Substance: ASPIRIN
     Indication: MOYAMOYA DISEASE
     Route: 048
     Dates: start: 20180313
  10. HUMIRA [Suspect]
     Active Substance: ADALIMUMAB
     Indication: SPONDYLITIS
     Route: 058
     Dates: start: 20180711, end: 20180711

REACTIONS (7)
  - Burning sensation [Unknown]
  - Febrile neutropenia [Recovered/Resolved]
  - Nausea [Unknown]
  - Swelling [Unknown]
  - Neck pain [Unknown]
  - Arthralgia [Unknown]
  - Headache [Unknown]

NARRATIVE: CASE EVENT DATE: 20180720
